FAERS Safety Report 12383656 (Version 28)
Quarter: 2020Q4

REPORT INFORMATION
  Report Type: Other
  Country: DE (occurrence: DE)
  Receive Date: 20160519
  Receipt Date: 20201203
  Transmission Date: 20210113
  Serious: Yes (Other)
  Sender: FDA-Public Use
  Company Number: DE-ROCHE-1611753

PATIENT
  Age: 65 Year
  Sex: Female
  Weight: 82 kg

DRUGS (23)
  1. ESBRIET [Suspect]
     Active Substance: PIRFENIDONE
     Route: 048
     Dates: start: 20130410
  2. ESOMEPRAZOL [Concomitant]
     Active Substance: ESOMEPRAZOLE
  3. ESBRIET [Suspect]
     Active Substance: PIRFENIDONE
     Route: 048
     Dates: start: 20190415, end: 20190421
  4. CANDESARTAN. [Concomitant]
     Active Substance: CANDESARTAN
  5. XARELTO [Concomitant]
     Active Substance: RIVAROXABAN
  6. DOMPERIDONE [Concomitant]
     Active Substance: DOMPERIDONE
     Route: 048
  7. METOCLOPRAMID [Concomitant]
     Active Substance: METOCLOPRAMIDE
  8. ENALAPRIL [Concomitant]
     Active Substance: ENALAPRIL
  9. ESBRIET [Suspect]
     Active Substance: PIRFENIDONE
     Route: 048
     Dates: start: 20190422
  10. EUTHYROX [Concomitant]
     Active Substance: LEVOTHYROXINE SODIUM
  11. DOMPERIDONE [Concomitant]
     Active Substance: DOMPERIDONE
     Route: 048
  12. MAALOXAN [Concomitant]
     Active Substance: ALUMINUM HYDROXIDE\MAGNESIUM HYDROXIDE
     Dosage: UP TO TWO SACS DAILY BEFORE NIGHT
  13. ESBRIET [Suspect]
     Active Substance: PIRFENIDONE
     Indication: IDIOPATHIC PULMONARY FIBROSIS
     Route: 048
     Dates: start: 20180115
  14. L-THYROXINE [Concomitant]
     Active Substance: LEVOTHYROXINE
  15. FOSTER [Concomitant]
     Active Substance: BECLOMETHASONE\FORMOTEROL
     Dosage: 100 UG/6 UG PER DOSAGE
     Route: 055
  16. ESOMEPRAZOLE. [Concomitant]
     Active Substance: ESOMEPRAZOLE MAGNESIUM
  17. ESBRIET [Suspect]
     Active Substance: PIRFENIDONE
     Dosage: IN THE MORNING AND AT NOON
     Route: 048
     Dates: start: 20190415, end: 20190421
  18. RELVAR [Concomitant]
     Active Substance: FLUTICASONE FUROATE\VILANTEROL TRIFENATATE
  19. FOSTER [Concomitant]
     Active Substance: BECLOMETHASONE\FORMOTEROL
     Dosage: 10 MICROGRAMS / 6 MICROGRAMS PER DOSE INHALATION POWDER
     Route: 055
  20. MAALOXAN [Concomitant]
     Active Substance: ALUMINUM HYDROXIDE\MAGNESIUM HYDROXIDE
     Dosage: TWO SACS AT NIGHT
  21. ESBRIET [Suspect]
     Active Substance: PIRFENIDONE
     Indication: IDIOPATHIC PULMONARY FIBROSIS
     Route: 048
     Dates: start: 20130410, end: 20160512
  22. ACETYLCYSTEINE. [Concomitant]
     Active Substance: ACETYLCYSTEINE
  23. DEKRISTOL [Concomitant]
     Active Substance: CHOLECALCIFEROL

REACTIONS (36)
  - Gastrointestinal disorder [Not Recovered/Not Resolved]
  - Pulmonary imaging procedure abnormal [Unknown]
  - Aphonia [Unknown]
  - Dysphonia [Not Recovered/Not Resolved]
  - Abdominal pain upper [Not Recovered/Not Resolved]
  - Cough [Not Recovered/Not Resolved]
  - Abdominal discomfort [Recovered/Resolved]
  - Headache [Unknown]
  - Cough [Unknown]
  - Asthenia [Recovered/Resolved]
  - Photosensitivity reaction [Unknown]
  - Pruritus [Unknown]
  - Nausea [Not Recovered/Not Resolved]
  - Drug hypersensitivity [Unknown]
  - Gastrooesophageal reflux disease [Recovering/Resolving]
  - Underdose [Unknown]
  - Erythema [Unknown]
  - Weight increased [Not Recovered/Not Resolved]
  - Vomiting [Recovered/Resolved]
  - Dyspepsia [Not Recovered/Not Resolved]
  - Sleep disorder [Not Recovered/Not Resolved]
  - Rash pruritic [Recovered/Resolved]
  - Chest discomfort [Recovered/Resolved]
  - Pustule [Unknown]
  - Pulmonary pain [Unknown]
  - Abdominal pain upper [Not Recovered/Not Resolved]
  - Asthma [Unknown]
  - Facial pain [Unknown]
  - Fatigue [Unknown]
  - Dyspnoea [Recovered/Resolved]
  - Gastrooesophageal reflux disease [Recovering/Resolving]
  - Dyspnoea [Not Recovered/Not Resolved]
  - Gastric ulcer [Not Recovered/Not Resolved]
  - Sunburn [Recovered/Resolved]
  - Dyspepsia [Not Recovered/Not Resolved]
  - Cough [Not Recovered/Not Resolved]

NARRATIVE: CASE EVENT DATE: 20130410
